FAERS Safety Report 9890849 (Version 2)
Quarter: 2014Q1

REPORT INFORMATION
  Report Type: Report from Study
  Country: NL (occurrence: NL)
  Receive Date: 20140212
  Receipt Date: 20140303
  Transmission Date: 20141002
  Serious: Yes (Other)
  Sender: FDA-Public Use
  Company Number: NL-ASTELLAS-2014US001339

PATIENT
  Age: 9 Year
  Sex: Male

DRUGS (5)
  1. TACROLIMUS OINTMENT [Suspect]
     Indication: DERMATITIS ATOPIC
     Dosage: 0.1 %, ONCE A DAY, TWICE WEEKLY
     Route: 061
     Dates: start: 20080926
  2. TACROLIMUS OINTMENT [Suspect]
     Dosage: 0.1 %, UID/QD
     Route: 061
     Dates: start: 20080926
  3. GRAZAX [Concomitant]
     Indication: HYPERSENSITIVITY
     Dosage: 75000 SQ-T, UNK
     Route: 048
     Dates: start: 2013
  4. LEVOCETIRIZINE [Concomitant]
     Indication: SEASONAL ALLERGY
     Dosage: 5 MG, UID/QD
     Route: 048
     Dates: start: 2013
  5. LEVOCETIRIZINE [Concomitant]
     Indication: HYPERSENSITIVITY

REACTIONS (3)
  - Off label use [Unknown]
  - Epilepsy [Recovered/Resolved]
  - Syncope [Recovered/Resolved]
